FAERS Safety Report 8911309 (Version 2)
Quarter: 2013Q4

REPORT INFORMATION
  Report Type: Spontaneous
  Country: US (occurrence: US)
  Receive Date: 20121116
  Receipt Date: 20131217
  Transmission Date: 20140711
  Serious: No
  Sender: FDA-Public Use
  Company Number: US-GLAXOSMITHKLINE-A0996335A

PATIENT
  Sex: Male

DRUGS (1)
  1. VOTRIENT [Suspect]
     Indication: RENAL CANCER
     Dosage: 200MG SEE DOSAGE TEXT
     Route: 065

REACTIONS (5)
  - Ill-defined disorder [Unknown]
  - Nausea [Unknown]
  - Diarrhoea [Unknown]
  - Dysgeusia [Unknown]
  - Drug ineffective [Unknown]
